FAERS Safety Report 16248052 (Version 1)
Quarter: 2019Q2

REPORT INFORMATION
  Report Type: Spontaneous
  Country: ES (occurrence: ES)
  Receive Date: 20190428
  Receipt Date: 20190428
  Transmission Date: 20190711
  Serious: Yes (Other)
  Sender: FDA-Public Use
  Company Number: ES-ALLERGAN-1918114US

PATIENT
  Sex: Male

DRUGS (2)
  1. EXOCIN 3MG/ML COLIRIO EN SOLUCI?N [Suspect]
     Active Substance: OFLOXACIN
     Indication: CONJUNCTIVITIS
     Dosage: UNK
     Route: 047
     Dates: start: 20190415, end: 20190415
  2. CIPROFLOXACINO 500 MG 14 COMPRIMIDOS [Suspect]
     Active Substance: CIPROFLOXACIN
     Indication: TONSILLAR INFLAMMATION
     Dosage: UNK
     Route: 048
     Dates: start: 20190415, end: 20190415

REACTIONS (2)
  - Urticaria [Recovering/Resolving]
  - Dyspnoea [Recovering/Resolving]

NARRATIVE: CASE EVENT DATE: 20190415
